FAERS Safety Report 10557898 (Version 4)
Quarter: 2015Q1

REPORT INFORMATION
  Report Type: Report from Study
  Country: CA (occurrence: CA)
  Receive Date: 20141031
  Receipt Date: 20150311
  Transmission Date: 20150720
  Serious: Yes (Hospitalization)
  Sender: FDA-Public Use
  Company Number: CA-TAKEDA-2014TUS010393

PATIENT
  Age: 27 Year
  Sex: Male
  Weight: 74 kg

DRUGS (7)
  1. TYLENOL EXTRA STRENGTH [Concomitant]
     Active Substance: ACETAMINOPHEN
     Indication: ABDOMINAL PAIN
     Dosage: 1000 MG, PRN
     Route: 048
     Dates: start: 20120716
  2. TYLENOL EXTRA STRENGTH [Concomitant]
     Active Substance: ACETAMINOPHEN
     Indication: HEADACHE
  3. SALOFALK SUPPOSITORY [Concomitant]
     Indication: COLITIS ULCERATIVE
     Dosage: 4 G, Q2 DAYS
     Route: 054
     Dates: start: 20140708
  4. VEDOLIZUMAB [Suspect]
     Active Substance: VEDOLIZUMAB
     Indication: COLITIS ULCERATIVE
     Dosage: 300 MG, Q4WEEKS
     Route: 042
     Dates: start: 20130618
  5. CORTIFOAM [Concomitant]
     Active Substance: HYDROCORTISONE ACETATE
     Indication: RECTAL HAEMORRHAGE
     Dosage: 1 APP, OD
     Route: 054
     Dates: start: 20140930
  6. BETNESOL                           /00008502/ [Concomitant]
     Dosage: UNK, QD
     Dates: start: 20140930
  7. MEZAVANT [Concomitant]
     Active Substance: MESALAMINE
     Indication: COLITIS ULCERATIVE
     Dosage: 2.4 G, BID
     Route: 048
     Dates: start: 20120529

REACTIONS (1)
  - Pneumonia viral [Recovered/Resolved]

NARRATIVE: CASE EVENT DATE: 20141022
